FAERS Safety Report 7045868-8 (Version None)
Quarter: 2010Q4

REPORT INFORMATION
  Report Type: 
  Country: None (occurrence: None)
  Receive Date: 20101013
  Receipt Date: 20101013
  Transmission Date: 20110411
  Serious: Yes (Other)
  Sender: FDA-Public Use
  Company Number: None

PATIENT
  Age: 61 Year
  Sex: Female
  Weight: 122.4712 kg

DRUGS (1)
  1. COZAAR [Suspect]
     Indication: BLOOD PRESSURE
     Dosage: 75 1 PO
     Route: 048
     Dates: start: 20100828, end: 20100903

REACTIONS (4)
  - BLOOD PRESSURE ABNORMAL [None]
  - DRUG DISPENSING ERROR [None]
  - PRODUCT LABEL ISSUE [None]
  - PRODUCT SUBSTITUTION ISSUE [None]
